FAERS Safety Report 8596925-6 (Version None)
Quarter: 2012Q3

REPORT INFORMATION
  Report Type: 
  Country: None (occurrence: None)
  Receive Date: 20120815
  Receipt Date: 20120807
  Transmission Date: 20120928
  Serious: Yes (Hospitalization)
  Sender: FDA-Public Use
  Company Number: BE-ABBOTT-12P-028-0961202-00

PATIENT
  Sex: Male

DRUGS (6)
  1. TENORMIN [Concomitant]
     Indication: HYPERTENSION
  2. TERAZOSABB [Concomitant]
     Indication: BENIGN PROSTATIC HYPERPLASIA
  3. HUMIRA [Suspect]
     Indication: CROHN'S DISEASE
     Route: 058
     Dates: start: 20000101
  4. RAMIPRIL [Concomitant]
     Indication: HYPERTENSION
  5. LERCANIDIPINE [Concomitant]
     Indication: HYPERTENSION
  6. LEVOTHYROXINE SODIUM [Concomitant]
     Indication: HYPERTHYROIDISM
     Route: 048

REACTIONS (1)
  - RENAL CELL CARCINOMA [None]
